FAERS Safety Report 9779645 (Version 1)
Quarter: 2013Q4

REPORT INFORMATION
  Report Type: Spontaneous
  Country: US (occurrence: US)
  Receive Date: 20131223
  Receipt Date: 20131223
  Transmission Date: 20140711
  Serious: No
  Sender: FDA-Public Use
  Company Number: US-PFIZER INC-2013362068

PATIENT
  Age: 61 Year
  Sex: Female
  Weight: 58.5 kg

DRUGS (3)
  1. SUTENT [Suspect]
     Dosage: UNK, CYCLIC
     Dates: start: 201310
  2. ZETIA [Concomitant]
  3. ZOMETA [Concomitant]

REACTIONS (11)
  - Diarrhoea [Unknown]
  - Flatulence [Unknown]
  - Decreased appetite [Unknown]
  - Weight decreased [Unknown]
  - Dysgeusia [Unknown]
  - Dry mouth [Unknown]
  - Dry skin [Unknown]
  - Fatigue [Unknown]
  - Pruritus [Unknown]
  - Skin exfoliation [Unknown]
  - Dysphagia [Unknown]
